FAERS Safety Report 20111851 (Version 6)
Quarter: 2025Q4

REPORT INFORMATION
  Report Type: Report from Study
  Country: US (occurrence: US)
  Receive Date: 20211125
  Receipt Date: 20251001
  Transmission Date: 20260117
  Serious: Yes (Other)
  Sender: INSMED
  Company Number: US-INSMED, INC.-2021-09754-US

PATIENT
  Sex: Female
  Weight: 62.132 kg

DRUGS (3)
  1. ARIKAYCE [Suspect]
     Active Substance: AMIKACIN
     Indication: Mycobacterium avium complex infection
     Dosage: 590 MILLIGRAM, QD
     Route: 055
     Dates: start: 20211004, end: 20220329
  2. RIFAMPIN [Suspect]
     Active Substance: RIFAMPIN
     Indication: Product used for unknown indication
     Dosage: 300 MILLIGRAM; TWO PILLS THREE TIMES A WEEK (ON MONDAY, WEDNESDAY AND FRIDAY)
     Route: 065
     Dates: start: 202109, end: 2022
  3. ELIQUIS [Concomitant]
     Active Substance: APIXABAN
     Indication: Product used for unknown indication
     Dosage: UNK
     Route: 065

REACTIONS (32)
  - Oxygen saturation decreased [Unknown]
  - Bronchiectasis [Unknown]
  - Lower respiratory tract infection [Unknown]
  - Weight decreased [Not Recovered/Not Resolved]
  - Increased viscosity of bronchial secretion [Not Recovered/Not Resolved]
  - Urinary incontinence [Not Recovered/Not Resolved]
  - Dysuria [Unknown]
  - Pollakiuria [Not Recovered/Not Resolved]
  - Fall [Unknown]
  - Eructation [Not Recovered/Not Resolved]
  - Abdominal distension [Not Recovered/Not Resolved]
  - Abdominal pain upper [Not Recovered/Not Resolved]
  - Abdominal discomfort [Not Recovered/Not Resolved]
  - Sputum discoloured [Not Recovered/Not Resolved]
  - Epistaxis [Not Recovered/Not Resolved]
  - Decreased appetite [Not Recovered/Not Resolved]
  - Muscular weakness [Not Recovered/Not Resolved]
  - Aphonia [Not Recovered/Not Resolved]
  - Balance disorder [Not Recovered/Not Resolved]
  - Headache [Not Recovered/Not Resolved]
  - Myalgia [Unknown]
  - Arthralgia [Unknown]
  - Chest discomfort [Unknown]
  - Dysphonia [Not Recovered/Not Resolved]
  - Cough [Not Recovered/Not Resolved]
  - Fatigue [Not Recovered/Not Resolved]
  - Wheezing [Not Recovered/Not Resolved]
  - Nausea [Not Recovered/Not Resolved]
  - Haemoptysis [Recovered/Resolved]
  - Dyspnoea [Not Recovered/Not Resolved]
  - Therapy interrupted [Unknown]
  - Drug ineffective [Unknown]

NARRATIVE: CASE EVENT DATE: 20210101
